FAERS Safety Report 9744423 (Version 1)
Quarter: 2013Q4

REPORT INFORMATION
  Report Type: Spontaneous
  Country: ES (occurrence: ES)
  Receive Date: 20131210
  Receipt Date: 20131210
  Transmission Date: 20140711
  Serious: Yes (Hospitalization, Other)
  Sender: FDA-Public Use
  Company Number: ES-TEVA-449043ISR

PATIENT
  Age: 71 Year
  Sex: Female

DRUGS (4)
  1. VINCRISTINA TEVA 1 MG/ML SOLUCION INYECTABLE EFG, 1 VIAL DE 2ML [Suspect]
     Route: 065
     Dates: start: 20130819, end: 20130819
  2. FARMIBLASTINA 50MG POLVO PARA SOLUCI?N INYECTABLE, 1 VIAL [Suspect]
     Route: 065
     Dates: start: 20130819, end: 20130819
  3. GENOXAL 1G INYECTABLE, 1 VIAL [Suspect]
     Route: 065
     Dates: start: 20130819, end: 20130819
  4. MABTHERA 500MG CONCENTRADO PARA SOLUCION PARA PERFUSION, 1 VIAL DE 50M [Suspect]
     Indication: B-CELL LYMPHOMA
     Route: 041
     Dates: start: 20130823, end: 20130823

REACTIONS (1)
  - Posterior reversible encephalopathy syndrome [Recovered/Resolved]
